FAERS Safety Report 13548691 (Version 1)
Quarter: 2017Q2

REPORT INFORMATION
  Report Type: Spontaneous
  Country: US (occurrence: US)
  Receive Date: 20170516
  Receipt Date: 20170516
  Transmission Date: 20170830
  Serious: No
  Sender: FDA-Public Use
  Company Number: US-JNJFOC-20170309284

PATIENT
  Sex: Female
  Weight: 72.58 kg

DRUGS (2)
  1. WOMENS ROGAINE UNSCENTED [Suspect]
     Active Substance: MINOXIDIL
     Indication: ALOPECIA
     Dosage: LESS THAN A CAPFUL
     Route: 061
  2. WOMENS ROGAINE UNSCENTED [Suspect]
     Active Substance: MINOXIDIL
     Route: 061

REACTIONS (7)
  - Pruritus [Recovered/Resolved]
  - Pain of skin [Recovered/Resolved]
  - Skin ulcer [Recovered/Resolved]
  - Erythema [Recovered/Resolved]
  - Product use in unapproved indication [Recovered/Resolved]
  - Alopecia [Recovered/Resolved]
  - Overdose [Recovered/Resolved]
